FAERS Safety Report 6417751-X (Version None)
Quarter: 2009Q4

REPORT INFORMATION
  Report Type: 
  Country: None (occurrence: None)
  Receive Date: 20091028
  Receipt Date: 20090929
  Transmission Date: 20100525
  Serious: No
  Sender: FDA-Public Use
  Company Number: US-BAYER-200914142BCC

PATIENT
  Age: 32 Year
  Sex: Female

DRUGS (1)
  1. MIDOL [Suspect]
     Indication: BACK PAIN
     Dosage: CONSUMER REPORTED THAT SHE CUT THE PILL AND CRUSHED IT.
     Route: 048
     Dates: start: 20090901, end: 20090901

REACTIONS (3)
  - PHARYNGEAL HYPOAESTHESIA [None]
  - THROAT IRRITATION [None]
  - THROAT TIGHTNESS [None]
